FAERS Safety Report 10157489 (Version 2)
Quarter: 2014Q2

REPORT INFORMATION
  Report Type: Spontaneous
  Country: IT (occurrence: IT)
  Receive Date: 20140507
  Receipt Date: 20140625
  Transmission Date: 20141212
  Serious: Yes (Hospitalization)
  Sender: FDA-Public Use
  Company Number: IT-SA-2014SA055842

PATIENT
  Age: 77 Year
  Sex: Female

DRUGS (5)
  1. LASIX [Suspect]
     Indication: PRODUCT USED FOR UNKNOWN INDICATION
     Route: 048
     Dates: start: 20131101, end: 20140408
  2. IRON [Concomitant]
  3. FOLIC ACID [Concomitant]
  4. FLUCONAZOLE [Concomitant]
  5. ANTRA [Concomitant]

REACTIONS (2)
  - Epilepsy [Recovering/Resolving]
  - Hypokalaemia [Recovering/Resolving]
